FAERS Safety Report 20702173 (Version 1)
Quarter: 2022Q2

REPORT INFORMATION
  Report Type: Spontaneous
  Country: US (occurrence: None)
  Receive Date: 20220411
  Receipt Date: 20220411
  Transmission Date: 20220720
  Serious: Yes (Other)
  Sender: FDA-Public Use
  Company Number: None

PATIENT
  Age: 30 Year
  Sex: Male
  Weight: 156.6 kg

DRUGS (1)
  1. TESTOSTERONE [Suspect]
     Active Substance: TESTOSTERONE
     Indication: Blood testosterone decreased
     Dosage: OTHER FREQUENCY : WEEKLY;?
     Route: 030

REACTIONS (2)
  - Injection site erythema [None]
  - Injection site infection [None]

NARRATIVE: CASE EVENT DATE: 20220404
